FAERS Safety Report 5334309-4 (Version None)
Quarter: 2007Q2

REPORT INFORMATION
  Report Type: 
  Country: None (occurrence: None)
  Receive Date: 20070525
  Receipt Date: 20070516
  Transmission Date: 20071010
  Serious: Yes (Hospitalization)
  Sender: FDA-Public Use
  Company Number: PHEH2007US05835

PATIENT

DRUGS (3)
  1. ZELNORM [Suspect]
     Indication: DIVERTICULITIS
     Dosage: 6 MG, BID
     Dates: start: 20060301, end: 20070402
  2. METOPROLOL SUCCINATE [Suspect]
  3. NORVASC [Concomitant]

REACTIONS (6)
  - CHEST PAIN [None]
  - DYSPNOEA [None]
  - MYOCARDIAL INFARCTION [None]
  - NAUSEA [None]
  - PALPITATIONS [None]
  - SENSATION OF HEAVINESS [None]
